FAERS Safety Report 5229906-0 (Version None)
Quarter: 2007Q1

REPORT INFORMATION
  Report Type: 
  Country: None (occurrence: None)
  Receive Date: 20070206
  Receipt Date: 20061201
  Transmission Date: 20070707
  Serious: No
  Sender: FDA-Public Use
  Company Number: US-GLAXOSMITHKLINE-A0629929A

PATIENT
  Age: 76 Year
  Sex: Female

DRUGS (2)
  1. PAXIL [Suspect]
     Indication: ANXIETY DISORDER
     Dosage: 20MG PER DAY
     Route: 048
     Dates: start: 20061124
  2. BONIVA [Concomitant]

REACTIONS (1)
  - NAUSEA [None]
